FAERS Safety Report 8853294 (Version 2)
Quarter: 2012Q4

REPORT INFORMATION
  Report Type: 
  Country: CO (occurrence: CO)
  Receive Date: 20121022
  Receipt Date: 20121113
  Transmission Date: 20130627
  Serious: Yes (Other)
  Sender: FDA-Public Use
  Company Number: CO-009507513-1210COL009295

PATIENT
  Age: 61 Year
  Sex: Female
  Weight: 94 kg

DRUGS (7)
  1. VICTRELIS [Suspect]
     Indication: HEPATITIS C
     Dosage: UNK, qd
     Route: 048
     Dates: start: 20120810
  2. RIBAVIRIN [Suspect]
     Indication: HEPATITIS C
     Dosage: UNK
     Route: 048
     Dates: start: 20120713
  3. PEGASYS [Suspect]
     Indication: HEPATITIS C
     Dosage: UNK
     Dates: start: 20120713
  4. METOPROLOL [Concomitant]
  5. SPIRONOLACTONE [Concomitant]
  6. EPOETIN [Concomitant]
     Dosage: UNK, tiw
  7. LEVOTHYROXINE SODIUM [Concomitant]

REACTIONS (1)
  - Pancytopenia [Unknown]
